FAERS Safety Report 4474461-6 (Version None)
Quarter: 2004Q4

REPORT INFORMATION
  Report Type: 
  Country: None (occurrence: None)
  Receive Date: 20041014
  Receipt Date: 20040407
  Transmission Date: 20050328
  Serious: Yes (Other)
  Sender: FDA-Public Use
  Company Number: US-GLAXOSMITHKLINE-A0506249A

PATIENT
  Age: 41 Year
  Weight: 75 kg

DRUGS (7)
  1. LAMICTAL [Suspect]
     Indication: DRUG USE FOR UNKNOWN INDICATION
     Route: 048
  2. CELEXA [Concomitant]
     Route: 048
  3. WELLBUTRIN SR [Concomitant]
     Route: 048
  4. ALBUTEROL [Concomitant]
  5. ALLEGRA [Concomitant]
     Route: 048
  6. CELEBREX [Concomitant]
  7. SLOW RELEASE IRON [Concomitant]
     Route: 048

REACTIONS (1)
  - COLITIS ULCERATIVE [None]
